FAERS Safety Report 7549237-3 (Version None)
Quarter: 2011Q2

REPORT INFORMATION
  Report Type: 
  Country: None (occurrence: None)
  Receive Date: 20110615
  Receipt Date: 20110609
  Transmission Date: 20111010
  Serious: Yes (Life-Threatening, Hospitalization)
  Sender: FDA-Public Use
  Company Number: PHHY2011MX50866

PATIENT
  Sex: Female

DRUGS (1)
  1. DIOVAN HCT [Suspect]
     Indication: HYPERTENSION
     Dosage: 1 DF (80 MG VALSARTAN/12.5 MG HYDROCHLOROTHIAZIDE)
     Dates: start: 20090101, end: 20110502

REACTIONS (4)
  - CHEST PAIN [None]
  - FATIGUE [None]
  - CORONARY ARTERY OCCLUSION [None]
  - DECREASED APPETITE [None]
